FAERS Safety Report 21794561 (Version 1)
Quarter: 2022Q4

REPORT INFORMATION
  Report Type: Spontaneous
  Country: GB (occurrence: GB)
  Receive Date: 20221229
  Receipt Date: 20221229
  Transmission Date: 20230113
  Serious: Yes (Other)
  Sender: FDA-Public Use
  Company Number: GB-Accord-292746

PATIENT
  Sex: Female

DRUGS (1)
  1. AMLODIPINE [Suspect]
     Active Substance: AMLODIPINE BESYLATE
     Indication: Product used for unknown indication
     Dosage: 10 MILLIGRAM, TID(STRENGTH: 10 MG,ONE, THREE TIMES A DAY)
     Route: 065

REACTIONS (5)
  - Headache [Not Recovered/Not Resolved]
  - Malaise [Unknown]
  - Syncope [Unknown]
  - Product dispensing error [Unknown]
  - Wrong product administered [Unknown]
